FAERS Safety Report 18122476 (Version 2)
Quarter: 2022Q1

REPORT INFORMATION
  Report Type: Spontaneous
  Country: CH (occurrence: CH)
  Receive Date: 20200807
  Receipt Date: 20220202
  Transmission Date: 20220423
  Serious: Yes (Other)
  Sender: FDA-Public Use
  Company Number: CH-SM-2020-13738

PATIENT
  Sex: Male

DRUGS (2)
  1. ISOTRETINOIN [Suspect]
     Active Substance: ISOTRETINOIN
     Dosage: 10 MILLIGRAM DAILY;
     Route: 065
     Dates: start: 20190904
  2. ISOTRETINOIN [Suspect]
     Active Substance: ISOTRETINOIN
     Dosage: 20 MILLIGRAM DAILY; PAUSED IN DECEMBER FOR 1 WEEK
     Route: 065
     Dates: start: 2019

REACTIONS (6)
  - Erectile dysfunction [Not Recovered/Not Resolved]
  - Depression [Recovering/Resolving]
  - Head discomfort [Recovered/Resolved]
  - Affect lability [Recovering/Resolving]
  - Irritability [Recovering/Resolving]
  - Dry skin [Recovering/Resolving]

NARRATIVE: CASE EVENT DATE: 20190901
